FAERS Safety Report 4860894-2 (Version None)
Quarter: 2005Q4

REPORT INFORMATION
  Report Type: 
  Country: None (occurrence: None)
  Receive Date: 20051216
  Receipt Date: 20051207
  Transmission Date: 20060501
  Serious: Yes (Death, Hospitalization, Other)
  Sender: FDA-Public Use
  Company Number: 2005023055

PATIENT
  Age: 44 Year
  Sex: Male
  Weight: 94 kg

DRUGS (6)
  1. ATORVASTATIN CALCIUM [Suspect]
     Indication: HYPERCHOLESTEROLAEMIA
     Dosage: 40 MG (40MG, 1 IN 1 D), ORAL
     Route: 048
     Dates: start: 20041230, end: 20040130
  2. PROPRANOLOL [Concomitant]
  3. DELURSAN (URSODEOXYCHOLIC ACID) [Concomitant]
  4. SUCRALFATE [Concomitant]
  5. ALDACTONE [Concomitant]
  6. TAURORSODESOXYCHOLIC ACID (TAUROSODESOXYCHOLIC ACID) [Concomitant]

REACTIONS (10)
  - AMYOTROPHY [None]
  - DIALYSIS [None]
  - HEPATIC CIRRHOSIS [None]
  - HEPATIC FAILURE [None]
  - HEPATORENAL SYNDROME [None]
  - HYPERKALAEMIA [None]
  - IATROGENIC INJURY [None]
  - RENAL FAILURE ACUTE [None]
  - RENAL INJURY [None]
  - RHABDOMYOLYSIS [None]
